FAERS Safety Report 9031011 (Version 1)
Quarter: 2013Q1

REPORT INFORMATION
  Report Type: Spontaneous
  Country: DK (occurrence: DK)
  Receive Date: 20130123
  Receipt Date: 20130123
  Transmission Date: 20140127
  Serious: Yes (Hospitalization)
  Sender: FDA-Public Use
  Company Number: PHHY2013DK005294

PATIENT
  Age: 78 Year
  Sex: Male
  Weight: 70 kg

DRUGS (1)
  1. BIOCLAVID [Suspect]
     Indication: LUNG INFECTION
     Dosage: 1000 MG, TID
     Route: 048
     Dates: start: 20121001, end: 20121010

REACTIONS (3)
  - Hepatotoxicity [Recovered/Resolved]
  - Hepatic necrosis [Recovered/Resolved]
  - Jaundice [Recovered/Resolved]
